FAERS Safety Report 25819555 (Version 1)
Quarter: 2025Q3

REPORT INFORMATION
  Report Type: Spontaneous
  Country: US (occurrence: US)
  Receive Date: 20250918
  Receipt Date: 20250918
  Transmission Date: 20251020
  Serious: No
  Sender: Haleon PLC
  Company Number: US-HALEON-2263389

PATIENT

DRUGS (2)
  1. GAS-X [Suspect]
     Active Substance: DIMETHICONE
     Indication: Abdominal discomfort
  2. GAS-X [Suspect]
     Active Substance: DIMETHICONE
     Indication: Abdominal pain upper

REACTIONS (2)
  - Product use in unapproved indication [Unknown]
  - Drug effective for unapproved indication [Unknown]
